FAERS Safety Report 18558544 (Version 2)
Quarter: 2020Q4

REPORT INFORMATION
  Report Type: Spontaneous
  Country: AU (occurrence: AU)
  Receive Date: 20201130
  Receipt Date: 20201130
  Transmission Date: 20210114
  Serious: Yes (Life-Threatening, Other)
  Sender: FDA-Public Use
  Company Number: AU-PFIZER INC-2020458903

PATIENT
  Age: 62 Year
  Sex: Male

DRUGS (6)
  1. DOBUTAMINE HCL [Suspect]
     Active Substance: DOBUTAMINE HYDROCHLORIDE
     Indication: ACUTE MYOCARDIAL INFARCTION
     Dosage: UNK
  2. HEPARIN [Suspect]
     Active Substance: HEPARIN SODIUM
     Indication: ACUTE MYOCARDIAL INFARCTION
     Dosage: UNK (INFUSION)
  3. HEPARIN [Suspect]
     Active Substance: HEPARIN SODIUM
     Indication: VENTRICULAR SEPTAL DEFECT
  4. NOREPINEPHRINE BITARTRATE. [Suspect]
     Active Substance: NOREPINEPHRINE BITARTRATE
     Indication: ACUTE MYOCARDIAL INFARCTION
     Dosage: UNK
  5. DOBUTAMINE HCL [Suspect]
     Active Substance: DOBUTAMINE HYDROCHLORIDE
     Indication: VENTRICULAR SEPTAL DEFECT
  6. NOREPINEPHRINE BITARTRATE. [Suspect]
     Active Substance: NOREPINEPHRINE BITARTRATE
     Indication: VENTRICULAR SEPTAL DEFECT

REACTIONS (3)
  - Drug ineffective [Unknown]
  - Thrombosis [Unknown]
  - Mitral valve stenosis [Unknown]
